FAERS Safety Report 24709191 (Version 1)
Quarter: 2024Q4

REPORT INFORMATION
  Report Type: Spontaneous
  Country: IT (occurrence: IT)
  Receive Date: 20241208
  Receipt Date: 20241208
  Transmission Date: 20250115
  Serious: Yes (Other)
  Sender: ROCHE
  Company Number: IT-ROCHE-10000150651

PATIENT
  Age: 69 Year
  Sex: Male

DRUGS (1)
  1. OCRELIZUMAB [Suspect]
     Active Substance: OCRELIZUMAB
     Indication: Multiple sclerosis
     Dosage: LAST CYCLE ON /MAY/2024
     Route: 065
     Dates: start: 202011

REACTIONS (4)
  - Endocarditis [Unknown]
  - Intervertebral discitis [Unknown]
  - Neutrophilia [Unknown]
  - Prostatitis [Unknown]
